FAERS Safety Report 7313919-9 (Version None)
Quarter: 2011Q1

REPORT INFORMATION
  Report Type: 
  Country: None (occurrence: None)
  Receive Date: 20110225
  Receipt Date: 20110218
  Transmission Date: 20110831
  Serious: Yes (Other)
  Sender: FDA-Public Use
  Company Number: PT-B.I. PHARMACEUTICALS,INC./RIDGEFIELD-2011-DE-01250PO

PATIENT
  Sex: Female
  Weight: 11.85 kg

DRUGS (1)
  1. ATROVENT [Suspect]
     Indication: ASTHMA
     Dosage: 2 ML
     Route: 055
     Dates: start: 20110111, end: 20110112

REACTIONS (4)
  - ERYTHEMA [None]
  - EYELID OEDEMA [None]
  - LIP OEDEMA [None]
  - CONJUNCTIVAL HYPERAEMIA [None]
